FAERS Safety Report 9954733 (Version 2)
Quarter: 2014Q1

REPORT INFORMATION
  Report Type: Spontaneous
  Country: US (occurrence: US)
  Receive Date: 20140304
  Receipt Date: 20140304
  Transmission Date: 20141002
  Serious: Yes (Other)
  Sender: FDA-Public Use
  Company Number: US-ABBVIE-13P-163-1073506-00

PATIENT
  Age: 63 Year
  Sex: Female
  Weight: 71.73 kg

DRUGS (3)
  1. HUMIRA [Suspect]
     Indication: RHEUMATOID ARTHRITIS
     Dates: start: 200501
  2. ARAVA [Suspect]
     Indication: PRODUCT USED FOR UNKNOWN INDICATION
  3. PREDNISONE [Concomitant]
     Indication: RHEUMATOID ARTHRITIS

REACTIONS (6)
  - Injection site bruising [Not Recovered/Not Resolved]
  - Osteomyelitis [Recovered/Resolved]
  - Device malfunction [Recovered/Resolved]
  - Urticaria [Not Recovered/Not Resolved]
  - Gingival swelling [Recovered/Resolved]
  - Gingivitis [Recovered/Resolved]
